FAERS Safety Report 20615574 (Version 2)
Quarter: 2025Q2

REPORT INFORMATION
  Report Type: Spontaneous
  Country: US (occurrence: US)
  Receive Date: 20220321
  Receipt Date: 20250602
  Transmission Date: 20250717
  Serious: Yes (Hospitalization, Other)
  Sender: AUROBINDO
  Company Number: US-AUROBINDO-AUR-APL-2022-008872

PATIENT
  Age: 40 Year
  Sex: Female

DRUGS (1)
  1. ZONISAMIDE [Suspect]
     Active Substance: ZONISAMIDE
     Indication: Weight decreased
     Dosage: 300 MILLIGRAM, ONCE A DAY
     Route: 065

REACTIONS (11)
  - Toxic epidermal necrolysis [Recovering/Resolving]
  - Delirium [Recovered/Resolved]
  - Lip swelling [Recovering/Resolving]
  - Psychotic disorder [Recovered/Resolved]
  - Mental status changes [Recovered/Resolved]
  - Confusional state [Recovered/Resolved]
  - Paranoia [Recovered/Resolved]
  - Hallucination, visual [Recovered/Resolved]
  - Agitation [Recovered/Resolved]
  - Consciousness fluctuating [Recovered/Resolved]
  - Off label use [Unknown]
